FAERS Safety Report 25442937 (Version 2)
Quarter: 2025Q4

REPORT INFORMATION
  Report Type: Spontaneous
  Country: US (occurrence: US)
  Receive Date: 20250617
  Receipt Date: 20251118
  Transmission Date: 20260118
  Serious: Yes (Other)
  Sender: CSL BEHRING
  Company Number: US-BEH-2025208946

PATIENT
  Sex: Female

DRUGS (7)
  1. PRIVIGEN [Suspect]
     Active Substance: HUMAN IMMUNOGLOBULIN G
     Indication: Polymyositis
     Dosage: 25 G, QOW(250 ML)
     Route: 042
     Dates: start: 202412
  2. PRIVIGEN [Suspect]
     Active Substance: HUMAN IMMUNOGLOBULIN G
     Dosage: 30 G, QOW(300 ML)
     Route: 042
     Dates: start: 202412
  3. PRIVIGEN [Suspect]
     Active Substance: HUMAN IMMUNOGLOBULIN G
     Dosage: 10 G, QOW(2 DAYS EVERY 2 WEEKS)
     Route: 042
     Dates: start: 202412
  4. PRIVIGEN [Suspect]
     Active Substance: HUMAN IMMUNOGLOBULIN G
     Dosage: 20 G, QOW(2 DAYS EVERY 2 WEEKS)
     Route: 042
     Dates: start: 202412
  5. PRIVIGEN [Suspect]
     Active Substance: HUMAN IMMUNOGLOBULIN G
     Dosage: 65 G
     Route: 065
  6. PRIVIGEN [Suspect]
     Active Substance: HUMAN IMMUNOGLOBULIN G
     Dosage: 70 G
     Route: 065
  7. PRIVIGEN [Suspect]
     Active Substance: HUMAN IMMUNOGLOBULIN G
     Dosage: 5 G, QOW(2 DAYS EVERY 2 WEEKS)
     Route: 042
     Dates: start: 202412

REACTIONS (11)
  - Dermatomyositis [Unknown]
  - Illness [Unknown]
  - Infection [Unknown]
  - Micturition frequency decreased [Unknown]
  - Urinary incontinence [Unknown]
  - Chromaturia [Unknown]
  - Product use in unapproved indication [Unknown]
  - Head discomfort [Unknown]
  - Dry eye [Unknown]
  - Sinus headache [Recovered/Resolved]
  - Swelling [Unknown]
